FAERS Safety Report 8212636-0 (Version None)
Quarter: 2012Q1

REPORT INFORMATION
  Report Type: 
  Country: None (occurrence: None)
  Receive Date: 20120315
  Receipt Date: 20120309
  Transmission Date: 20120608
  Serious: Yes (Other)
  Sender: FDA-Public Use
  Company Number: US-BAYER-2012-023853

PATIENT
  Age: 40 Year
  Sex: Female

DRUGS (4)
  1. YASMIN [Suspect]
     Dosage: UNK
     Dates: start: 20101201, end: 20110201
  2. DROSPIRENONE AND ETHINYL ESTRADIOL [Suspect]
     Dosage: UNK
     Dates: start: 20100401, end: 20101201
  3. YAZ [Suspect]
     Dosage: UNK
     Dates: start: 20110201, end: 20110501
  4. YASMIN [Suspect]
     Dosage: UNK
     Dates: start: 20110501, end: 20110831

REACTIONS (5)
  - ANXIETY [None]
  - PAIN [None]
  - DEEP VEIN THROMBOSIS [None]
  - ANHEDONIA [None]
  - PSYCHOLOGICAL TRAUMA [None]
